FAERS Safety Report 10429271 (Version 1)
Quarter: 2014Q3

REPORT INFORMATION
  Report Type: Spontaneous
  Country: US (occurrence: None)
  Receive Date: 20140725
  Receipt Date: 20140725
  Transmission Date: 20150326
  Serious: No
  Sender: FDA-Public Use
  Company Number: AP356-00889-SPO-US

PATIENT
  Age: 54 Year
  Sex: Female
  Weight: 117 kg

DRUGS (23)
  1. FENTANYL (FENTANYL) [Concomitant]
     Active Substance: FENTANYL
  2. FUROSEMIDE (FUROSEMIDE) [Concomitant]
     Active Substance: FUROSEMIDE
  3. ASPIRIN (ACETYLSALICYLIC ACID) [Concomitant]
     Active Substance: ASPIRIN
  4. PLAVIX [Concomitant]
     Active Substance: CLOPIDOGREL BISULFATE
  5. TESALON (BENZONATATE) [Concomitant]
  6. PROAIR (FLUTICASONE PROPIONATE) [Concomitant]
     Active Substance: FLUTICASONE PROPIONATE
  7. HYSOCYAMINE SULFATE [Concomitant]
  8. NOVOLOG [Concomitant]
     Active Substance: INSULIN ASPART
  9. ZOLOFT [Concomitant]
     Active Substance: SERTRALINE HYDROCHLORIDE
  10. COMBIVENT [Concomitant]
     Active Substance: ALBUTEROL SULFATE\IPRATROPIUM BROMIDE
  11. LISINOPRIL (LISINOPRIL) [Concomitant]
     Active Substance: LISINOPRIL
  12. VITAMIN D (VITAMIN D NOS) [Concomitant]
  13. HYDROCODONE (HYDROCODONE) [Concomitant]
     Active Substance: HYDROCODONE
  14. TOPAMAX [Concomitant]
     Active Substance: TOPIRAMATE
  15. BELVIQ [Suspect]
     Active Substance: LORCASERIN HYDROCHLORIDE
     Indication: WEIGHT DECREASED
     Route: 048
     Dates: start: 201405, end: 20140609
  16. METOPROLOL (METOPROLOL) [Concomitant]
     Active Substance: METOPROLOL
  17. PROMETHAZINE [Concomitant]
     Active Substance: PROMETHAZINE\PROMETHAZINE HYDROCHLORIDE
  18. SYNTHROID [Concomitant]
     Active Substance: LEVOTHYROXINE SODIUM
  19. ZANAFLEX [Concomitant]
     Active Substance: TIZANIDINE HYDROCHLORIDE
  20. DITROPAN (OXYBUTYNIN) [Concomitant]
  21. ZOCOR [Concomitant]
     Active Substance: SIMVASTATIN
  22. ESTRADIOL (ESTRADIOL) [Concomitant]
  23. HYDROMORPHONE (HYDROMORPHONE) [Concomitant]
     Active Substance: HYDROMORPHONE

REACTIONS (2)
  - Fatigue [None]
  - Mania [None]

NARRATIVE: CASE EVENT DATE: 201405
